FAERS Safety Report 17996049 (Version 9)
Quarter: 2025Q3

REPORT INFORMATION
  Report Type: Report from Study
  Country: BR (occurrence: BR)
  Receive Date: 20200708
  Receipt Date: 20250908
  Transmission Date: 20251020
  Serious: Yes (Other)
  Sender: TAKEDA
  Company Number: BR-TAKEDA-2019TUS058149

PATIENT
  Age: 74 Year
  Sex: Female

DRUGS (3)
  1. VEDOLIZUMAB [Suspect]
     Active Substance: VEDOLIZUMAB
     Indication: Colitis ulcerative
  2. VEDOLIZUMAB [Suspect]
     Active Substance: VEDOLIZUMAB
  3. MESALAMINE [Suspect]
     Active Substance: MESALAMINE
     Indication: Product used for unknown indication

REACTIONS (24)
  - Dysentery [Unknown]
  - Varicella zoster sepsis [Recovered/Resolved]
  - Influenza [Unknown]
  - Malaise [Unknown]
  - Bowel movement irregularity [Recovering/Resolving]
  - Nausea [Recovered/Resolved]
  - Fatigue [Recovered/Resolved]
  - Frequent bowel movements [Unknown]
  - Body height decreased [Unknown]
  - Depression [Unknown]
  - Spinal disorder [Unknown]
  - Asthenia [Unknown]
  - Bedridden [Unknown]
  - Decreased immune responsiveness [Unknown]
  - Colonoscopy abnormal [Unknown]
  - Faecal calprotectin abnormal [Unknown]
  - Abdominal pain [Unknown]
  - Back disorder [Unknown]
  - Pruritus [Unknown]
  - Pain [Unknown]
  - Anxiety [Unknown]
  - Nervousness [Unknown]
  - Product availability issue [Recovered/Resolved]
  - Herpes zoster [Recovered/Resolved]

NARRATIVE: CASE EVENT DATE: 20191008
